FAERS Safety Report 6512479-X (Version None)
Quarter: 2009Q4

REPORT INFORMATION
  Report Type: 
  Country: None (occurrence: None)
  Receive Date: 20091222
  Receipt Date: 20091216
  Transmission Date: 20100525
  Serious: Yes (Hospitalization)
  Sender: FDA-Public Use
  Company Number: US-GILEAD-2009-0025222

PATIENT
  Sex: Female
  Weight: 101.79 kg

DRUGS (11)
  1. LETAIRIS [Suspect]
     Indication: PULMONARY ARTERIAL HYPERTENSION
     Route: 048
     Dates: start: 20090512
  2. REVATIO [Concomitant]
  3. OXYGEN [Concomitant]
  4. ASPIRIN [Concomitant]
  5. AMLODIPINE BESYLATE AND BENAZEPRIL HCL [Concomitant]
  6. METOPROLOL TARTRATE [Concomitant]
  7. PANTOPRAZOLE [Concomitant]
  8. LIPITOR [Concomitant]
  9. BUMETANIDE [Concomitant]
  10. PROPOXY-M/APAP [Concomitant]
  11. AMITRIPTYLINE [Concomitant]

REACTIONS (2)
  - CARDIAC FAILURE CONGESTIVE [None]
  - MITRAL VALVE STENOSIS [None]
